FAERS Safety Report 13464022 (Version 1)
Quarter: 2017Q2

REPORT INFORMATION
  Report Type: Spontaneous
  Country: US (occurrence: US)
  Receive Date: 20170420
  Receipt Date: 20170420
  Transmission Date: 20170830
  Serious: Yes (Other)
  Sender: FDA-Public Use
  Company Number: US-ROCHE-632804

PATIENT
  Age: 16 Year
  Sex: Male
  Weight: 74.8 kg

DRUGS (1)
  1. ACCUTANE [Suspect]
     Active Substance: ISOTRETINOIN
     Indication: ACNE CYSTIC
     Dosage: 40 MG IN THE MORNING AND 20 MG AT NIGHT
     Route: 048
     Dates: start: 19961205, end: 199704

REACTIONS (6)
  - Blood cholesterol increased [Recovered/Resolved]
  - Inflammatory bowel disease [Unknown]
  - Depression [Unknown]
  - Crohn^s disease [Unknown]
  - Back pain [Unknown]
  - Chapped lips [Unknown]

NARRATIVE: CASE EVENT DATE: 199612
